FAERS Safety Report 4342752-5 (Version None)
Quarter: 2004Q2

REPORT INFORMATION
  Report Type: 
  Country: None (occurrence: None)
  Receive Date: 20040416
  Receipt Date: 20040406
  Transmission Date: 20050107
  Serious: Yes (Other)
  Sender: FDA-Public Use
  Company Number: 200314622BCC

PATIENT
  Age: 75 Year
  Sex: Female
  Weight: 75.7507 kg

DRUGS (6)
  1. ALEVE (CAPLET) [Suspect]
     Indication: ARTHRITIS
     Dosage: 220 MG, PRN, ORAL
     Route: 048
     Dates: start: 20030219, end: 20030519
  2. ZOCOR [Concomitant]
  3. HYZAAR [Concomitant]
  4. CALTRATE CALCIUM [Concomitant]
  5. VITAMINS NOS [Concomitant]
  6. OMEGA 3 [Concomitant]

REACTIONS (1)
  - BLOOD PRESSURE INCREASED [None]
